FAERS Safety Report 9113031 (Version 1)
Quarter: 2013Q1

REPORT INFORMATION
  Report Type: Spontaneous
  Country: US (occurrence: US)
  Receive Date: 20130211
  Receipt Date: 20130211
  Transmission Date: 20140127
  Serious: Yes (Other)
  Sender: FDA-Public Use
  Company Number: US-PFIZER INC-2013053453

PATIENT
  Age: 83 Year
  Sex: Female
  Weight: 63.49 kg

DRUGS (5)
  1. ADVIL LIQUIGEL [Suspect]
     Indication: ARTHRITIS
     Dosage: UNK, 2X/DAY
     Route: 048
     Dates: start: 2011
  2. ATENOLOL [Concomitant]
     Dosage: UNK
  3. HYDROCHLOROTHIAZIDE [Concomitant]
     Dosage: UNK
  4. SIMVASTATIN [Concomitant]
     Dosage: UNK
  5. ASPIRIN [Concomitant]
     Indication: ILL-DEFINED DISORDER
     Dosage: UNK

REACTIONS (1)
  - Transient ischaemic attack [Unknown]
